FAERS Safety Report 23887006 (Version 3)
Quarter: 2024Q2

REPORT INFORMATION
  Report Type: Other
  Country: US (occurrence: None)
  Receive Date: 20240523
  Receipt Date: 20240611
  Transmission Date: 20240716
  Serious: Yes (Hospitalization, Other)
  Sender: FDA-Public Use
  Company Number: US-ROCHE-3564074

PATIENT
  Age: 62 Year
  Sex: Male

DRUGS (8)
  1. OCREVUS [Suspect]
     Active Substance: OCRELIZUMAB
     Indication: Primary progressive multiple sclerosis
     Dosage: INJECT 20 ML(I.E. 600 MG) IV ONCE EVERY 6 MONTHS.?DATE OF TREATMENT: 07/SEP/2018, /AUG/2019, 22/MAY/
     Route: 042
     Dates: start: 20180117
  2. OCREVUS [Suspect]
     Active Substance: OCRELIZUMAB
     Indication: Paraplegia
     Route: 042
     Dates: start: 201709, end: 202306
  3. TYLENOL [Concomitant]
     Active Substance: ACETAMINOPHEN
     Route: 048
  4. BENADRYL [Concomitant]
     Active Substance: DIPHENHYDRAMINE HYDROCHLORIDE
     Route: 048
  5. DIAZEPAM [Concomitant]
     Active Substance: DIAZEPAM
     Indication: Muscle spasms
  6. GABAPENTIN [Concomitant]
     Active Substance: GABAPENTIN
     Dates: start: 201811
  7. MEROPENEM [Concomitant]
     Active Substance: MEROPENEM
     Route: 042
  8. ZOSYN [Concomitant]
     Active Substance: PIPERACILLIN SODIUM\TAZOBACTAM SODIUM
     Dates: start: 20220410

REACTIONS (12)
  - Cognitive disorder [Not Recovered/Not Resolved]
  - Slow speech [Not Recovered/Not Resolved]
  - Memory impairment [Not Recovered/Not Resolved]
  - Wound infection [Not Recovered/Not Resolved]
  - Ulcer [Unknown]
  - Osteomyelitis [Unknown]
  - Abdominal wall abscess [Unknown]
  - Septic shock [Recovered/Resolved]
  - Urinary tract infection [Recovered/Resolved]
  - Neurogenic bladder [Unknown]
  - Postoperative wound infection [Unknown]
  - Lung neoplasm malignant [Unknown]

NARRATIVE: CASE EVENT DATE: 20190101
